FAERS Safety Report 10368174 (Version 1)
Quarter: 2014Q3

REPORT INFORMATION
  Report Type: Report from Study
  Country: US (occurrence: US)
  Receive Date: 20140807
  Receipt Date: 20140807
  Transmission Date: 20150326
  Serious: Yes (Life-Threatening, Hospitalization)
  Sender: FDA-Public Use
  Company Number: US-MERCK-1408USA002364

PATIENT
  Age: 53 Year
  Sex: Male
  Weight: 62.9 kg

DRUGS (14)
  1. RITUXIMAB [Suspect]
     Active Substance: RITUXIMAB
     Dosage: 375 MG/M2 INTRAVENOUS  (IV) ON DAY 1
     Route: 042
     Dates: start: 20140314
  2. VINCRISTINE SULFATE. [Suspect]
     Active Substance: VINCRISTINE SULFATE
     Indication: NON-HODGKIN^S LYMPHOMA
     Dosage: 0.4 MG/M2/DAY CONTINUOUS IV INFUSION OVER 96 HOURS ON DAYS 1-4, CYCLE 6
     Route: 042
     Dates: start: 20140711
  3. DOXORUBICIN [Suspect]
     Active Substance: DOXORUBICIN
     Dosage: 10 MG/ M2/DAY CONTIUOUS IV INFUSION OVER 96 HOURS ON DAY 1-4
     Route: 042
     Dates: start: 20140314
  4. ETOPOSIDE. [Suspect]
     Active Substance: ETOPOSIDE
     Indication: NON-HODGKIN^S LYMPHOMA
     Dosage: 50 MG/M2/DAY CONTINUOUS IV INFUSION OVER 96 HOURS ON DAYS 1-4, CYCLE 6
     Route: 042
     Dates: start: 20140711
  5. CYCLOPHOSPHAMIDE. [Suspect]
     Active Substance: CYCLOPHOSPHAMIDE
     Indication: NON-HODGKIN^S LYMPHOMA
     Dosage: 375 MG/M2-750 MG/M2 IV OVER 1 HOUR ON DAY 5 (CYCLE 6)
     Route: 042
     Dates: start: 20140715
  6. VORINOSTAT [Suspect]
     Active Substance: VORINOSTAT
     Dosage: 300 MG PER ORAL (PO) ON DAYS 1-5
     Route: 048
     Dates: start: 20140314
  7. CYCLOPHOSPHAMIDE. [Suspect]
     Active Substance: CYCLOPHOSPHAMIDE
     Dosage: 375 MG/M2-750 MG/M2 IV OVER 1 HOUR ON DAY 5
     Route: 042
     Dates: start: 20140314
  8. ETOPOSIDE. [Suspect]
     Active Substance: ETOPOSIDE
     Dosage: 50 MG/M2/DAY CONTINUOUS IV INFUSION OVER 96 HOURS ON DAYS 1-4
     Route: 042
     Dates: start: 20140314
  9. PREDNISONE. [Suspect]
     Active Substance: PREDNISONE
     Dosage: 60 MG/M2/DAY PO ON DAYS 1-5
     Route: 048
     Dates: start: 20140314
  10. RITUXIMAB [Suspect]
     Active Substance: RITUXIMAB
     Indication: NON-HODGKIN^S LYMPHOMA
     Dosage: 375 MG/M2, IV ON DAY 1, CYCLE 6
     Route: 042
     Dates: start: 20140711
  11. VORINOSTAT [Suspect]
     Active Substance: VORINOSTAT
     Indication: NON-HODGKIN^S LYMPHOMA
     Dosage: 300 MG PER ORAL (PO) ON DAYS 1-5 (CYCLE 06)
     Route: 048
     Dates: start: 20140711
  12. PREDNISONE. [Suspect]
     Active Substance: PREDNISONE
     Indication: NON-HODGKIN^S LYMPHOMA
     Dosage: 60 MG/M2/DAY PO ON DAYS 1-5, CYCLE 6
     Route: 048
     Dates: start: 20140711
  13. DOXORUBICIN [Suspect]
     Active Substance: DOXORUBICIN
     Indication: NON-HODGKIN^S LYMPHOMA
     Dosage: 10 MG/ M2/DAY CONTIUOUS IV INFUSION OVER 96 HOURS ON DAY 1-4,CYCLE 6
     Route: 042
     Dates: start: 20140711
  14. VINCRISTINE SULFATE. [Suspect]
     Active Substance: VINCRISTINE SULFATE
     Dosage: 0.4 MG/M2/DAY CONTINUOUS IV INFUSION OVER 96 HOURS ON DAYS 1-4
     Route: 042
     Dates: start: 20140314

REACTIONS (4)
  - Neutrophil count decreased [Recovering/Resolving]
  - White blood cell count decreased [Recovering/Resolving]
  - Enterocolitis [Recovering/Resolving]
  - Lymphocyte count decreased [Recovering/Resolving]

NARRATIVE: CASE EVENT DATE: 20140722
